FAERS Safety Report 21580730 (Version 6)
Quarter: 2023Q1

REPORT INFORMATION
  Report Type: Report from Study
  Country: US (occurrence: US)
  Receive Date: 20221111
  Receipt Date: 20230112
  Transmission Date: 20230417
  Serious: No
  Sender: FDA-Public Use
  Company Number: US-002147023-NVSC2022US251421

PATIENT
  Age: 55 Year
  Sex: Male

DRUGS (2)
  1. COSENTYX [Suspect]
     Active Substance: SECUKINUMAB
     Indication: Psoriatic arthropathy
     Dosage: 150 MG, QW
     Route: 058
     Dates: start: 20220820
  2. COSENTYX [Suspect]
     Active Substance: SECUKINUMAB
     Dosage: UNK
     Route: 065
     Dates: end: 202211

REACTIONS (9)
  - Pain [Unknown]
  - Vomiting [Unknown]
  - Nausea [Unknown]
  - Adverse drug reaction [Unknown]
  - Diarrhoea [Unknown]
  - Back pain [Unknown]
  - Sacral pain [Unknown]
  - Arthralgia [Unknown]
  - Dizziness [Unknown]

NARRATIVE: CASE EVENT DATE: 20221001
